FAERS Safety Report 9351030 (Version 2)
Quarter: 2013Q3

REPORT INFORMATION
  Report Type: Spontaneous
  Country: US (occurrence: US)
  Receive Date: 20130617
  Receipt Date: 20130924
  Transmission Date: 20140515
  Serious: No
  Sender: FDA-Public Use
  Company Number: US-009507513-1306USA002957

PATIENT
  Sex: Female

DRUGS (1)
  1. COPPERTONE WATER BABIES PURE + SIMPLE LOTION SPF 50 [Suspect]
     Indication: PRODUCT USED FOR UNKNOWN INDICATION
     Dosage: UNK, UNKNOWN
     Route: 061
     Dates: start: 20130528

REACTIONS (3)
  - Eye irritation [Unknown]
  - Hyperhidrosis [Unknown]
  - Accidental exposure to product [Unknown]
